FAERS Safety Report 15286471 (Version 7)
Quarter: 2018Q4

REPORT INFORMATION
  Report Type: Spontaneous
  Country: DE (occurrence: DE)
  Receive Date: 20180816
  Receipt Date: 20181005
  Transmission Date: 20190204
  Serious: Yes (Hospitalization, Other)
  Sender: FDA-Public Use
  Company Number: PHHY2018DE070840

PATIENT
  Age: 72 Year
  Sex: Male

DRUGS (5)
  1. DIPIPERON [Suspect]
     Active Substance: PIPAMPERONE
     Indication: PRODUCT USED FOR UNKNOWN INDICATION
     Dosage: 40 MG, UNK
     Route: 048
     Dates: start: 20171121, end: 20171121
  2. AMITRIPTYLINE [Suspect]
     Active Substance: AMITRIPTYLINE
     Indication: SLEEP DISORDER
     Dosage: 50 MG, QD (FOR 4 MONTHS)
     Route: 048
     Dates: start: 20171121
  3. DIPIPERON [Suspect]
     Active Substance: PIPAMPERONE
     Dosage: 60 MG, QD
     Route: 048
  4. DIPIPERON [Suspect]
     Active Substance: PIPAMPERONE
     Dosage: 20 MG, UNK
     Route: 048
  5. DOMINAL (PROTHIPENDYL HYDROCHLORIDE) [Suspect]
     Active Substance: PROTHIPENDYL HYDROCHLORIDE
     Indication: PRODUCT USED FOR UNKNOWN INDICATION
     Dosage: 80 MG, UNK
     Route: 048
     Dates: start: 20171121, end: 20171121

REACTIONS (3)
  - Facial bones fracture [Recovered/Resolved]
  - Traumatic fracture [Recovered/Resolved]
  - Fall [Recovered/Resolved]

NARRATIVE: CASE EVENT DATE: 20171122
